FAERS Safety Report 18245198 (Version 3)
Quarter: 2020Q4

REPORT INFORMATION
  Report Type: Report from Study
  Country: IN (occurrence: IN)
  Receive Date: 20200908
  Receipt Date: 20201009
  Transmission Date: 20210113
  Serious: Yes (Hospitalization)
  Sender: FDA-Public Use
  Company Number: IN-BAXTER-2020BAX018116

PATIENT
  Age: 2 Year
  Sex: Female

DRUGS (2)
  1. PERITONEAL DIALYSIS SOLUTION WITH 1.5% DEXTROSE [Suspect]
     Active Substance: CALCIUM CHLORIDE\DEXTROSE\MAGNESIUM CHLORIDE\SODIUM CHLORIDE\SODIUM LACTATE
     Indication: RENAL FAILURE
     Dosage: 1 BAG
     Route: 033
  2. PERITONEAL DIALYSIS SOLUTION WITH 2.5% DEXTROSE [Suspect]
     Active Substance: CALCIUM CHLORIDE\DEXTROSE\MAGNESIUM CHLORIDE\SODIUM CHLORIDE\SODIUM LACTATE
     Indication: RENAL FAILURE
     Dosage: 1 BAG
     Route: 033

REACTIONS (3)
  - Blood calcium increased [Recovering/Resolving]
  - Cardiac arrest [Recovered/Resolved]
  - Hand fracture [Recovering/Resolving]

NARRATIVE: CASE EVENT DATE: 20200828
